FAERS Safety Report 7781624-0 (Version None)
Quarter: 2011Q3

REPORT INFORMATION
  Report Type: 
  Country: None (occurrence: None)
  Receive Date: 20110927
  Receipt Date: 20110922
  Transmission Date: 20111222
  Serious: Yes (Other)
  Sender: FDA-Public Use
  Company Number: CHPA2011US12984

PATIENT
  Age: 66 Year
  Sex: Female

DRUGS (2)
  1. ASPIRIN [Concomitant]
     Dosage: 4 DF, QD
  2. VOLTAREN [Suspect]
     Indication: COMPLEX REGIONAL PAIN SYNDROME
     Dosage: 2 G, BID
     Route: 061
     Dates: start: 20110601

REACTIONS (4)
  - OFF LABEL USE [None]
  - THROMBOSIS [None]
  - ABDOMINAL PAIN UPPER [None]
  - BLISTER [None]
